FAERS Safety Report 18339328 (Version 1)
Quarter: 2020Q4

REPORT INFORMATION
  Report Type: Spontaneous
  Country: US (occurrence: US)
  Receive Date: 20201002
  Receipt Date: 20201002
  Transmission Date: 20210113
  Serious: Yes (Other)
  Sender: FDA-Public Use
  Company Number: None

PATIENT
  Age: 36 Year
  Sex: Male
  Weight: 124.7 kg

DRUGS (7)
  1. ACETAMINOPHEN (ON AS NEEDED BASIS) [Concomitant]
     Dates: start: 20200922, end: 20200928
  2. CEFTRIAXONE. [Concomitant]
     Active Substance: CEFTRIAXONE
     Dates: start: 20200925, end: 20200928
  3. ENOXAPARIN [Concomitant]
     Active Substance: ENOXAPARIN
     Dates: start: 20200922, end: 20200928
  4. GUAIFENESIN-CODEINE (ON AS NEEDED BASIS) [Concomitant]
     Dates: start: 20200922, end: 20200928
  5. AZITHROMYCIN ANHYDROUS. [Concomitant]
     Active Substance: AZITHROMYCIN ANHYDROUS
     Dates: start: 20200924, end: 20200928
  6. DEXAMETHASONE. [Concomitant]
     Active Substance: DEXAMETHASONE
     Dates: start: 20200923, end: 20200928
  7. VEKLURY [Suspect]
     Active Substance: REMDESIVIR
     Indication: COVID-19
     Route: 041
     Dates: start: 20200924, end: 20200927

REACTIONS (2)
  - Alanine aminotransferase increased [None]
  - Hepatotoxicity [None]

NARRATIVE: CASE EVENT DATE: 20200928
